FAERS Safety Report 17035697 (Version 1)
Quarter: 2019Q4

REPORT INFORMATION
  Report Type: Spontaneous
  Country: US (occurrence: US)
  Receive Date: 20191115
  Receipt Date: 20191115
  Transmission Date: 20200122
  Serious: No
  Sender: FDA-Public Use
  Company Number: US-LUPIN PHARMACEUTICALS INC.-2019-06454

PATIENT
  Sex: Male

DRUGS (1)
  1. DULOXETINE DELAYED-RELEASE CAPSULES 30 MG [Suspect]
     Active Substance: DULOXETINE HYDROCHLORIDE
     Indication: MAJOR DEPRESSION
     Dosage: UNK
     Route: 065
     Dates: start: 201604, end: 201605

REACTIONS (3)
  - Anxiety [Recovered/Resolved]
  - Discomfort [Recovered/Resolved]
  - Drug ineffective [Unknown]

NARRATIVE: CASE EVENT DATE: 201604
